FAERS Safety Report 7794535-1 (Version None)
Quarter: 2011Q4

REPORT INFORMATION
  Report Type: 
  Country: None (occurrence: None)
  Receive Date: 20111003
  Receipt Date: 20111003
  Transmission Date: 20120403
  Serious: Yes (Other)
  Sender: FDA-Public Use
  Company Number: None

PATIENT
  Age: 62 Year
  Sex: Female
  Weight: 65.7716 kg

DRUGS (1)
  1. RECLAST [Suspect]
     Indication: OSTEOPOROSIS
     Dosage: UNKNOWN (1) XP.YR. IV INFUSION
     Route: 042
     Dates: start: 20110106

REACTIONS (5)
  - EAR PAIN [None]
  - DEAFNESS [None]
  - DRUG INEFFECTIVE [None]
  - EAR INFECTION [None]
  - GROIN PAIN [None]
